FAERS Safety Report 10863348 (Version 1)
Quarter: 2015Q1

REPORT INFORMATION
  Report Type: Spontaneous
  Country: GB (occurrence: GB)
  Receive Date: 20150224
  Receipt Date: 20150224
  Transmission Date: 20150721
  Serious: Yes (Other)
  Sender: FDA-Public Use
  Company Number: GB-GALDERMA-GB15000607

PATIENT
  Age: 45 Year
  Sex: Female
  Weight: 61.68 kg

DRUGS (2)
  1. FINACEA [Concomitant]
     Active Substance: AZELAIC ACID
     Dates: start: 20131109, end: 20140509
  2. MIRVASO [Suspect]
     Active Substance: BRIMONIDINE TARTRATE
     Dosage: 0.33%
     Route: 061
     Dates: start: 20140429, end: 20140506

REACTIONS (4)
  - Rosacea [Recovered/Resolved]
  - Condition aggravated [Recovered/Resolved]
  - Application site pain [Recovered/Resolved]
  - Application site erythema [Recovered/Resolved]

NARRATIVE: CASE EVENT DATE: 20140430
